FAERS Safety Report 20167425 (Version 2)
Quarter: 2022Q1

REPORT INFORMATION
  Report Type: Spontaneous
  Country: US (occurrence: US)
  Receive Date: 20211209
  Receipt Date: 20220121
  Transmission Date: 20220423
  Serious: Yes (Death, Other)
  Sender: FDA-Public Use
  Company Number: US-ALLERGAN-2141850US

PATIENT
  Sex: Female

DRUGS (27)
  1. OZURDEX [Suspect]
     Active Substance: DEXAMETHASONE
     Indication: Macular degeneration
     Dosage: 0.7 MG, SINGLE
     Route: 031
     Dates: start: 20210226, end: 20210226
  2. EYLEA [Suspect]
     Active Substance: AFLIBERCEPT
     Indication: Macular degeneration
     Dosage: UNK, SINGLE
     Dates: start: 20210910, end: 20210910
  3. EYLEA [Suspect]
     Active Substance: AFLIBERCEPT
     Dosage: UNK, SINGLE
     Dates: start: 20210813, end: 20210813
  4. ACETAMINOPHEN [Concomitant]
     Active Substance: ACETAMINOPHEN
  5. ALBUTEROL SULFATE [Concomitant]
     Active Substance: ALBUTEROL SULFATE
  6. ASPIRIN [Concomitant]
     Active Substance: ASPIRIN
     Dosage: 81 MG
  7. CARVEDILOL [Concomitant]
     Active Substance: CARVEDILOL
  8. CYANOCOBALAMIN [Concomitant]
     Active Substance: CYANOCOBALAMIN
  9. VITAMIN D NOS [Concomitant]
     Active Substance: VITAMIN D NOS
  10. FOLIC ACID [Concomitant]
     Active Substance: FOLIC ACID
  11. GABAPENTIN [Concomitant]
     Active Substance: GABAPENTIN
  12. MAGNESIUM [Concomitant]
     Active Substance: MAGNESIUM
  13. PROCARDIA [Concomitant]
     Active Substance: NIFEDIPINE
  14. OMEPRAZOLE [Concomitant]
     Active Substance: OMEPRAZOLE
  15. POTASSIUM [Concomitant]
     Active Substance: POTASSIUM
  16. PRAVASTATIN [Concomitant]
     Active Substance: PRAVASTATIN
  17. REQUIP [Concomitant]
     Active Substance: ROPINIROLE HYDROCHLORIDE
  18. SENOKOT [Concomitant]
     Active Substance: SENNOSIDES
  19. TORSEMIDE [Concomitant]
     Active Substance: TORSEMIDE
  20. METOPROLOL [Concomitant]
     Active Substance: METOPROLOL
  21. AMLODIPINE [Concomitant]
     Active Substance: AMLODIPINE BESYLATE
  22. HYDRALAZINE [Concomitant]
     Active Substance: HYDRALAZINE HYDROCHLORIDE
  23. TRELEGY ELLIPTA [Concomitant]
     Active Substance: FLUTICASONE FUROATE\UMECLIDINIUM BROMIDE\VILANTEROL TRIFENATATE
  24. PANTOPRAZOLE [Concomitant]
     Active Substance: PANTOPRAZOLE
  25. ADVAIR DISKUS [Concomitant]
     Active Substance: FLUTICASONE PROPIONATE\SALMETEROL XINAFOATE
  26. VITAMIN B12 [Concomitant]
     Active Substance: CYANOCOBALAMIN
  27. FERROUS SULFATE [Concomitant]
     Active Substance: FERROUS SULFATE

REACTIONS (1)
  - Death [Fatal]
